FAERS Safety Report 4294536-4 (Version None)
Quarter: 2004Q1

REPORT INFORMATION
  Report Type: 
  Country: None (occurrence: None)
  Receive Date: 20040213
  Receipt Date: 20040206
  Transmission Date: 20041129
  Serious: Yes (Other)
  Sender: FDA-Public Use
  Company Number: 200411764GDDC

PATIENT
  Age: 80 Year
  Sex: Male
  Weight: 95 kg

DRUGS (6)
  1. FRUSEMIDE [Suspect]
     Route: 048
  2. DOXYCYCLINE [Suspect]
     Indication: LOWER RESPIRATORY TRACT INFECTION
     Route: 048
     Dates: start: 20010108, end: 20040115
  3. SIMVASTATIN [Concomitant]
     Dosage: DOSE: I
  4. ISOSORBIDE MONONITRATE [Concomitant]
  5. WARFARIN SODIUM [Concomitant]
     Dosage: DOSE: UNK
  6. LISINOPRIL [Concomitant]

REACTIONS (2)
  - DRUG INTERACTION [None]
  - URINE FLOW DECREASED [None]
